FAERS Safety Report 4824889-7 (Version None)
Quarter: 2005Q4

REPORT INFORMATION
  Report Type: 
  Country: None (occurrence: None)
  Receive Date: 20051110
  Receipt Date: 20051026
  Transmission Date: 20060501
  Serious: Yes (Hospitalization)
  Sender: FDA-Public Use
  Company Number: UG-GLAXOSMITHKLINE-B0386345B

PATIENT
  Age: 30 Year
  Sex: Female
  Weight: 56 kg

DRUGS (1)
  1. TRIZIVIR [Suspect]
     Indication: HIV INFECTION
     Dosage: 1TAB TWICE PER DAY
     Route: 048
     Dates: start: 20050419, end: 20050927

REACTIONS (11)
  - ANOREXIA [None]
  - ARTHRALGIA [None]
  - CHEST PAIN [None]
  - COUGH [None]
  - HAEMOPTYSIS [None]
  - HEADACHE [None]
  - HYPOTENSION [None]
  - LUNG CONSOLIDATION [None]
  - PNEUMONIA [None]
  - PYREXIA [None]
  - TACHYCARDIA [None]
